FAERS Safety Report 26203352 (Version 1)
Quarter: 2025Q4

REPORT INFORMATION
  Report Type: Spontaneous
  Country: EU (occurrence: EU)
  Receive Date: 20251226
  Receipt Date: 20251226
  Transmission Date: 20260118
  Serious: Yes (Other)
  Sender: ELI LILLY AND COMPANY
  Company Number: None

PATIENT
  Age: 0 Day
  Weight: 2.56 kg

DRUGS (4)
  1. CYMBALTA [Suspect]
     Active Substance: DULOXETINE HYDROCHLORIDE
     Indication: Fibromyalgia
     Dosage: 2 DOSAGE FORM, DAILY
     Route: 064
     Dates: end: 202306
  2. CYMBALTA [Suspect]
     Active Substance: DULOXETINE HYDROCHLORIDE
     Indication: Fibromyalgia
     Dosage: 2 DOSAGE FORM, DAILY
     Route: 064
     Dates: end: 202306
  3. ACETAMINOPHEN\OPIUM [Suspect]
     Active Substance: ACETAMINOPHEN\OPIUM
     Indication: Fibromyalgia
     Dosage: 1 DOSAGE FORM, DAILY
     Route: 064
     Dates: end: 202306
  4. ACETAMINOPHEN\OPIUM [Suspect]
     Active Substance: ACETAMINOPHEN\OPIUM
     Indication: Fibromyalgia
     Dosage: 1 DOSAGE FORM, DAILY
     Route: 064
     Dates: end: 202306

REACTIONS (2)
  - Foetal malnutrition [Not Recovered/Not Resolved]
  - Foetal exposure during pregnancy [Recovered/Resolved]

NARRATIVE: CASE EVENT DATE: 20230601
